FAERS Safety Report 18991366 (Version 1)
Quarter: 2021Q1

REPORT INFORMATION
  Report Type: Spontaneous
  Country: GB (occurrence: GB)
  Receive Date: 20210310
  Receipt Date: 20210310
  Transmission Date: 20210420
  Serious: Yes (Death, Other)
  Sender: FDA-Public Use
  Company Number: GB-CURIUM-199800075

PATIENT
  Age: 63 Year
  Sex: Female

DRUGS (1)
  1. TECHNESCAN HDP [Suspect]
     Active Substance: TECHNETIUM TC-99M OXIDRONATE
     Indication: BONE SCAN
     Route: 042
     Dates: start: 19981218, end: 19981218

REACTIONS (6)
  - Cold sweat [Unknown]
  - Mydriasis [Unknown]
  - Hypotension [Unknown]
  - Feeling hot [Unknown]
  - Hyperhidrosis [Unknown]
  - Septic shock [Fatal]

NARRATIVE: CASE EVENT DATE: 19981218
